FAERS Safety Report 8835965 (Version 1)
Quarter: 2012Q4

REPORT INFORMATION
  Report Type: 
  Country: US (occurrence: US)
  Receive Date: 20121011
  Receipt Date: 20121011
  Transmission Date: 20130627
  Serious: No
  Sender: FDA-Public Use
  Company Number: US-PFIZER INC-2012251571

PATIENT
  Sex: Female

DRUGS (4)
  1. LIPITOR [Suspect]
     Dosage: UNK
  2. CALAN SR [Concomitant]
  3. CELONTIN [Concomitant]
  4. COLESTID [Concomitant]

REACTIONS (1)
  - Muscle spasms [Unknown]
